FAERS Safety Report 5199392-8 (Version None)
Quarter: 2006Q4

REPORT INFORMATION
  Report Type: 
  Country: None (occurrence: None)
  Receive Date: 20061229
  Receipt Date: 20061215
  Transmission Date: 20070319
  Serious: Yes (Hospitalization)
  Sender: FDA-Public Use
  Company Number: 2006BI016699

PATIENT
  Sex: Female

DRUGS (1)
  1. AVONEX [Suspect]
     Indication: DRUG USE FOR UNKNOWN INDICATION
     Dosage: QW; IM
     Route: 030
     Dates: start: 20021011, end: 20061001

REACTIONS (2)
  - IMPAIRED HEALING [None]
  - MULTIPLE SCLEROSIS RELAPSE [None]
